FAERS Safety Report 25164635 (Version 1)
Quarter: 2025Q2

REPORT INFORMATION
  Report Type: Report from Study
  Country: DE (occurrence: DE)
  Receive Date: 20250406
  Receipt Date: 20250406
  Transmission Date: 20250716
  Serious: Yes (Other)
  Sender: ABBVIE
  Company Number: DE-ABBVIE-6207068

PATIENT
  Age: 25 Year
  Sex: Male

DRUGS (1)
  1. RINVOQ [Suspect]
     Active Substance: UPADACITINIB
     Indication: Crohn^s disease
     Route: 048
     Dates: start: 202402

REACTIONS (4)
  - Large intestinal haemorrhage [Unknown]
  - Cholangitis sclerosing [Not Recovered/Not Resolved]
  - Colitis [Unknown]
  - Diverticulum oesophageal [Not Recovered/Not Resolved]

NARRATIVE: CASE EVENT DATE: 20250101
